FAERS Safety Report 7387105-0 (Version None)
Quarter: 2011Q1

REPORT INFORMATION
  Report Type: 
  Country: None (occurrence: None)
  Receive Date: 20110331
  Receipt Date: 20110324
  Transmission Date: 20110831
  Serious: Yes (Other)
  Sender: FDA-Public Use
  Company Number: A0772868A

PATIENT
  Age: 53 Year
  Sex: Male
  Weight: 125 kg

DRUGS (6)
  1. METFORMIN HCL [Concomitant]
  2. ZOCOR [Concomitant]
  3. AVANDIA [Suspect]
     Indication: DIABETES MELLITUS
     Dosage: 8MG PER DAY
     Route: 048
     Dates: start: 20031101, end: 20070701
  4. ALTACE [Concomitant]
  5. VYTORIN [Concomitant]
  6. COREG [Concomitant]

REACTIONS (2)
  - MYOCARDIAL INFARCTION [None]
  - CORONARY ARTERY DISEASE [None]
